FAERS Safety Report 4420301-0 (Version None)
Quarter: 2004Q3

REPORT INFORMATION
  Report Type: 
  Country: None (occurrence: None)
  Receive Date: 20040809
  Receipt Date: 20040401
  Transmission Date: 20050211
  Serious: No
  Sender: FDA-Public Use
  Company Number: US-GLAXOSMITHKLINE-A0505619A

PATIENT
  Sex: Male

DRUGS (1)
  1. PAXIL [Suspect]

REACTIONS (6)
  - DIZZINESS [None]
  - LIBIDO DECREASED [None]
  - NAUSEA [None]
  - THINKING ABNORMAL [None]
  - TREMOR [None]
  - YAWNING [None]
